FAERS Safety Report 17647062 (Version 4)
Quarter: 2021Q3

REPORT INFORMATION
  Report Type: Report from Study
  Country: US (occurrence: US)
  Receive Date: 20200408
  Receipt Date: 20210814
  Transmission Date: 20211014
  Serious: No
  Sender: FDA-Public Use
  Company Number: NVSC2020US093403

PATIENT
  Age: 53 Year
  Sex: Female

DRUGS (2)
  1. COSENTYX [Suspect]
     Active Substance: SECUKINUMAB
     Indication: PRODUCT USED FOR UNKNOWN INDICATION
     Dosage: UNK UNK, UNKNOWN
     Route: 058
  2. COSENTYX [Suspect]
     Active Substance: SECUKINUMAB
     Dosage: 300 MG, Q2W
     Route: 058

REACTIONS (5)
  - Inappropriate schedule of product administration [Unknown]
  - Pain [Unknown]
  - Arthralgia [Unknown]
  - Irritable bowel syndrome [Unknown]
  - Illness [Unknown]

NARRATIVE: CASE EVENT DATE: 20200819
